FAERS Safety Report 6725954-X (Version None)
Quarter: 2010Q2

REPORT INFORMATION
  Report Type: 
  Country: None (occurrence: None)
  Receive Date: 20100512
  Receipt Date: 20100427
  Transmission Date: 20101027
  Serious: Yes (Life-Threatening, Hospitalization, Other)
  Sender: FDA-Public Use
  Company Number: AUR-APL-2010-01184

PATIENT
  Age: 77 Year
  Sex: Female
  Weight: 95 kg

DRUGS (7)
  1. METFORMIN HYDROCHLORIDE [Suspect]
     Indication: TYPE 2 DIABETES MELLITUS
     Dosage: 500MG, BID, ORAL
     Route: 048
     Dates: start: 19950101
  2. GLIBENCLAMIDE [Suspect]
     Indication: TYPE 2 DIABETES MELLITUS
     Dosage: 1.75, DAILY, ORAL
     Route: 048
     Dates: start: 20000101, end: 20080727
  3. SIMVASTATIN [Concomitant]
  4. METOPROLOL TARTRATE [Concomitant]
  5. ASPIRIN [Concomitant]
  6. LISINOPRIL [Concomitant]
  7. PANTOPRAZOLE SODIUM [Concomitant]

REACTIONS (7)
  - BLOOD PRESSURE ABNORMAL [None]
  - CONFUSIONAL STATE [None]
  - FLUID INTAKE REDUCED [None]
  - HYPOGLYCAEMIA [None]
  - HYPOPHAGIA [None]
  - INFECTED SKIN ULCER [None]
  - RENAL FAILURE ACUTE [None]
